FAERS Safety Report 18652996 (Version 1)
Quarter: 2020Q4

REPORT INFORMATION
  Report Type: Report from Study
  Country: US (occurrence: US)
  Receive Date: 20201223
  Receipt Date: 20201223
  Transmission Date: 20210114
  Serious: Yes (Other)
  Sender: FDA-Public Use
  Company Number: US-SHIRE-US202026675

PATIENT
  Age: 58 Year
  Sex: Female

DRUGS (1)
  1. HUMAN IMMUNOGLOBULIN; HYALURONIDASE [Suspect]
     Active Substance: HUMAN IMMUNOGLOBULIN G\HYALURONIDASE RECOMBINANT HUMAN
     Indication: IMMUNODEFICIENCY COMMON VARIABLE
     Dosage: UNK
     Route: 065

REACTIONS (9)
  - Wrist fracture [Unknown]
  - Hip fracture [Unknown]
  - Fall [Unknown]
  - Unevaluable event [Unknown]
  - Crohn^s disease [Unknown]
  - Impaired healing [Unknown]
  - Osteoporosis [Unknown]
  - Pain [Unknown]
  - Vein disorder [Unknown]

NARRATIVE: CASE EVENT DATE: 202004
